FAERS Safety Report 8967321 (Version 3)
Quarter: 2013Q1

REPORT INFORMATION
  Report Type: Spontaneous
  Country: FR (occurrence: FR)
  Receive Date: 20121214
  Receipt Date: 20130211
  Transmission Date: 20140127
  Serious: Yes (Hospitalization, Other)
  Sender: FDA-Public Use
  Company Number: FR-GENZYME-THYM-1003531

PATIENT
  Age: 44 Year
  Sex: Female

DRUGS (11)
  1. THYMOGLOBULINE [Suspect]
     Indication: BONE MARROW CONDITIONING REGIMEN
     Dosage: 0.5 MG/KG, UNK
     Route: 042
     Dates: start: 20121002, end: 20121007
  2. THYMOGLOBULINE [Suspect]
     Dosage: 0.5 MG/ML, UNK
     Route: 042
     Dates: start: 20121009, end: 20121014
  3. CELLCEPT [Suspect]
     Indication: PRODUCT USED FOR UNKNOWN INDICATION
     Dosage: 1 G DURING 2 DAYS
     Route: 048
     Dates: start: 20121002
  4. PROGRAF [Suspect]
     Indication: PRODUCT USED FOR UNKNOWN INDICATION
     Dosage: UNK
     Route: 048
     Dates: start: 20121006, end: 20121009
  5. PROGRAF [Suspect]
     Dosage: UNK
     Route: 048
     Dates: start: 20121017
  6. PREVISCAN [Concomitant]
     Indication: PRODUCT USED FOR UNKNOWN INDICATION
     Dosage: UNK
     Route: 065
  7. TAHOR [Concomitant]
     Indication: PRODUCT USED FOR UNKNOWN INDICATION
     Dosage: UNK
     Route: 065
  8. AMLOR [Concomitant]
     Indication: PRODUCT USED FOR UNKNOWN INDICATION
     Dosage: UNK
     Route: 065
  9. TARDYFERON [Concomitant]
     Indication: PRODUCT USED FOR UNKNOWN INDICATION
     Dosage: UNK
     Route: 065
  10. ARANESP [Concomitant]
     Indication: PRODUCT USED FOR UNKNOWN INDICATION
     Dosage: UNK
     Route: 065
  11. UVEDOSE [Concomitant]
     Indication: PRODUCT USED FOR UNKNOWN INDICATION
     Dosage: UNK
     Route: 065

REACTIONS (5)
  - Microcytic anaemia [Unknown]
  - Haemolysis [Unknown]
  - Renal failure [Unknown]
  - Thrombotic microangiopathy [Not Recovered/Not Resolved]
  - Thrombocytopenia [Unknown]
